FAERS Safety Report 6531542-0 (Version None)
Quarter: 2010Q1

REPORT INFORMATION
  Report Type: 
  Country: None (occurrence: None)
  Receive Date: 20100108
  Receipt Date: 20090611
  Transmission Date: 20100710
  Serious: Yes (Other)
  Sender: FDA-Public Use
  Company Number: US-BAYER-200921667NA

PATIENT
  Age: 46 Year
  Sex: Male
  Weight: 73 kg

DRUGS (42)
  1. MAGNEVIST [Suspect]
     Indication: NUCLEAR MAGNETIC RESONANCE IMAGING
     Route: 042
     Dates: start: 20060331, end: 20060331
  2. MAGNEVIST [Suspect]
     Route: 042
     Dates: start: 20060614, end: 20060614
  3. MAGNEVIST [Suspect]
     Route: 042
     Dates: start: 20060616, end: 20060616
  4. MAGNEVIST [Suspect]
     Dosage: AS USED: 13 ML
     Route: 042
     Dates: start: 20060923, end: 20060923
  5. MAGNEVIST [Suspect]
     Route: 042
     Dates: start: 20060929, end: 20060929
  6. MAGNEVIST [Suspect]
     Route: 042
     Dates: start: 20060929, end: 20060929
  7. MAGNEVIST [Suspect]
     Dosage: AS USED: 20 ML
     Route: 042
     Dates: start: 20070423, end: 20070423
  8. OMNISCAN [Suspect]
     Indication: NUCLEAR MAGNETIC RESONANCE IMAGING
     Dosage: TOTAL DAILY DOSE: 20 ML
     Route: 042
     Dates: start: 20060930, end: 20060930
  9. OPTIMARK [Suspect]
     Indication: NUCLEAR MAGNETIC RESONANCE IMAGING
  10. MULTIHANCE [Suspect]
     Indication: NUCLEAR MAGNETIC RESONANCE IMAGING
  11. PROHANCE [Suspect]
     Indication: NUCLEAR MAGNETIC RESONANCE IMAGING
  12. PNEUMOCOCCAL VACCINE [Concomitant]
  13. ERYTHROPOETIN [Concomitant]
  14. PHOSLO [Concomitant]
  15. FOLIC ACID [Concomitant]
  16. COUMADIN [Concomitant]
  17. LIPITOR [Concomitant]
  18. PROTONIX [Concomitant]
  19. VITAMIN TAB [Concomitant]
  20. GLUCOTROL [Concomitant]
  21. REGLAN [Concomitant]
  22. REQUIP [Concomitant]
  23. PLAVIX [Concomitant]
  24. LYRICA [Concomitant]
  25. CLONIDINE [Concomitant]
  26. KEPPRA [Concomitant]
  27. PAXIL [Concomitant]
  28. TRILEPTAL [Concomitant]
  29. HEPARIN [Concomitant]
  30. ZEMPLAR [Concomitant]
  31. COREG [Concomitant]
  32. OXYCODONE [Concomitant]
  33. HYDROCODONE BITARTRATE [Concomitant]
  34. FENTANYL-100 [Concomitant]
  35. DILANTIN [Concomitant]
  36. PHENOBARBITAL [Concomitant]
  37. ADVAIR DISKUS 100/50 [Concomitant]
  38. MEGESTROL ACETATE [Concomitant]
  39. PROCARDIA [Concomitant]
  40. INSULIN [Concomitant]
  41. KAYEXALATE [Concomitant]
  42. NORVASC [Concomitant]

REACTIONS (12)
  - JOINT CONTRACTURE [None]
  - JOINT RANGE OF MOTION DECREASED [None]
  - NEPHROGENIC SYSTEMIC FIBROSIS [None]
  - OEDEMA PERIPHERAL [None]
  - PAIN OF SKIN [None]
  - SKIN ATROPHY [None]
  - SKIN FIBROSIS [None]
  - SKIN HYPERPIGMENTATION [None]
  - SKIN HYPERTROPHY [None]
  - SKIN INDURATION [None]
  - SKIN TIGHTNESS [None]
  - SKIN ULCER [None]
